FAERS Safety Report 11555856 (Version 1)
Quarter: 2015Q3

REPORT INFORMATION
  Report Type: Spontaneous
  Country: US (occurrence: US)
  Receive Date: 20150903
  Receipt Date: 20150903
  Transmission Date: 20151125
  Serious: Yes (Other)
  Sender: FDA-Public Use
  Company Number: US-ELI_LILLY_AND_COMPANY-US201012001001

PATIENT
  Sex: Male

DRUGS (1)
  1. HUMALOG [Suspect]
     Active Substance: INSULIN LISPRO
     Indication: DIABETES MELLITUS
     Dates: start: 1995

REACTIONS (3)
  - Neurotransmitter level altered [Unknown]
  - Blood glucose decreased [Unknown]
  - Hypoglycaemia unawareness [Unknown]

NARRATIVE: CASE EVENT DATE: 20101029
